FAERS Safety Report 9915940 (Version 1)
Quarter: 2014Q1

REPORT INFORMATION
  Report Type: Spontaneous
  Country: US (occurrence: None)
  Receive Date: 20140219
  Receipt Date: 20140219
  Transmission Date: 20141002
  Serious: Yes (Other)
  Sender: FDA-Public Use
  Company Number: AUR-APL-2014-01645

PATIENT
  Age: 94 Year
  Sex: Female

DRUGS (1)
  1. MELOXICAM (MELOXICAM) [Suspect]
     Indication: OSTEOARTHRITIS
     Dosage: 7.5 MG (7.5 MG, 1 IN 1 D), UNKNOWN
     Dates: end: 20121221

REACTIONS (1)
  - Renal impairment [None]
